FAERS Safety Report 18584455 (Version 1)
Quarter: 2020Q4

REPORT INFORMATION
  Report Type: Spontaneous
  Country: CA (occurrence: CA)
  Receive Date: 20201207
  Receipt Date: 20201207
  Transmission Date: 20210114
  Serious: Yes (Other)
  Sender: FDA-Public Use
  Company Number: CA-STRIDES ARCOLAB LIMITED-2020SP015090

PATIENT
  Sex: Male

DRUGS (2)
  1. TRIAMCINOLONE ACETONIDE. [Suspect]
     Active Substance: TRIAMCINOLONE ACETONIDE
     Indication: URETERIC ANASTOMOSIS COMPLICATION
     Dosage: 4 MILLIGRAM PER MILLILITER AND INJECTED INTO THE THREE, NINE AND 12 O^CLOCK INCISION SITES
  2. TRIAMCINOLONE ACETONIDE. [Suspect]
     Active Substance: TRIAMCINOLONE ACETONIDE
     Dosage: 4 MILLIGRAM PER MILLILITRE, 40 MILLIGRAM PER MILLILITRE VIAL WAS DILUTED TO 4 MG/ML WITH SODIUM CHLO

REACTIONS (1)
  - Urinary retention postoperative [Recovered/Resolved]
